FAERS Safety Report 26004768 (Version 1)
Quarter: 2025Q4

REPORT INFORMATION
  Report Type: Spontaneous
  Country: EU (occurrence: EU)
  Receive Date: 20251106
  Receipt Date: 20251106
  Transmission Date: 20260118
  Serious: Yes (Death, Life-Threatening, Other)
  Sender: BAXTER
  Company Number: None

PATIENT
  Age: 41 Year
  Sex: Male
  Weight: 77 kg

DRUGS (10)
  1. TRANSDERM SCOP [Suspect]
     Active Substance: SCOPOLAMINE
     Indication: Product used for unknown indication
     Dosage: 1 PATCH EVERY 3 DAYS
     Route: 062
     Dates: start: 20250704, end: 20250904
  2. HALOPERIDOL DECANOATE [Suspect]
     Active Substance: HALOPERIDOL DECANOATE
     Indication: Schizophrenia
     Dosage: REFER TO COMMENTS
     Route: 030
     Dates: start: 20250819, end: 20250819
  3. LOXAPINE [Suspect]
     Active Substance: LOXAPINE
     Indication: Schizophrenia
     Dosage: 300 MG, QD, (100 MG, 3 TIMES PER DAY)
     Route: 030
     Dates: end: 20250913
  4. OLANZAPINE [Suspect]
     Active Substance: OLANZAPINE
     Indication: Schizophrenia
     Dosage: 20 MG, QD
     Route: 030
     Dates: end: 20250913
  5. VALIUM [Suspect]
     Active Substance: DIAZEPAM
     Indication: Schizophrenia
     Dosage: 30 MG, QD
     Route: 030
     Dates: end: 20250913
  6. ZOPICLONE [Suspect]
     Active Substance: ZOPICLONE
     Indication: Schizophrenia
     Dosage: 7,5 MG SB
     Route: 030
     Dates: end: 20250913
  7. ATROPINE SULFATE [Suspect]
     Active Substance: ATROPINE SULFATE
     Indication: Product used for unknown indication
     Dosage: 3 DROPS
     Route: 060
     Dates: start: 20250704, end: 20250904
  8. EUPANTOL [Suspect]
     Active Substance: PANTOPRAZOLE SODIUM
     Indication: Gastrooesophageal reflux disease
     Dosage: 1 DOSAGE FORM, QD
     Route: 048
     Dates: start: 20250911, end: 20250913
  9. GAVISCON [Suspect]
     Active Substance: ALUMINUM HYDROXIDE\MAGNESIUM CARBONATE
     Indication: Gastrooesophageal reflux disease
     Dosage: 3 DOSAGE FORM, QD
     Route: 048
     Dates: start: 20250911, end: 20250913
  10. TROPATEPINE HYDROCHLORIDE [Suspect]
     Active Substance: TROPATEPINE HYDROCHLORIDE
     Indication: Schizophrenia
     Dosage: 1 DOSAGE FORM, QD
     Route: 048
     Dates: end: 20250913

REACTIONS (4)
  - Cardio-respiratory arrest [Fatal]
  - General physical health deterioration [Not Recovered/Not Resolved]
  - Vomiting [Not Recovered/Not Resolved]
  - Diarrhoea [Not Recovered/Not Resolved]

NARRATIVE: CASE EVENT DATE: 20250913
